FAERS Safety Report 11938546 (Version 1)
Quarter: 2016Q1

REPORT INFORMATION
  Report Type: Spontaneous
  Country: None (occurrence: None)
  Receive Date: 20160120
  Receipt Date: 20160120
  Transmission Date: 20160526
  Serious: Yes (Life-Threatening, Hospitalization)
  Sender: FDA-Public Use
  Company Number: None

PATIENT

DRUGS (1)
  1. LIDOCAINE PF [Suspect]
     Active Substance: LIDOCAINE
     Indication: VASCULAR OPERATION

REACTIONS (2)
  - Cardio-respiratory arrest [None]
  - Hypersensitivity [None]
